FAERS Safety Report 24356229 (Version 1)
Quarter: 2024Q3

REPORT INFORMATION
  Report Type: Report from Study
  Country: CA (occurrence: CA)
  Receive Date: 20240924
  Receipt Date: 20240924
  Transmission Date: 20241017
  Serious: Yes (Hospitalization, Other)
  Sender: AMGEN
  Company Number: CA-002147023-NVSC2024CA184939

PATIENT
  Sex: Female

DRUGS (1)
  1. AIMOVIG [Suspect]
     Active Substance: ERENUMAB-AOOE
     Indication: Migraine
     Dosage: UNK (INJECTABLE)
     Route: 065
     Dates: start: 20190927

REACTIONS (2)
  - Dementia [Unknown]
  - Cerebral disorder [Unknown]
